FAERS Safety Report 9538029 (Version 3)
Quarter: 2013Q4

REPORT INFORMATION
  Report Type: Spontaneous
  Country: SK (occurrence: SK)
  Receive Date: 20130920
  Receipt Date: 20131016
  Transmission Date: 20140711
  Serious: Yes (Other)
  Sender: FDA-Public Use
  Company Number: SK-AMGEN-SVKSP2013060762

PATIENT
  Sex: Female

DRUGS (2)
  1. PROLIA [Suspect]
     Indication: OSTEOPOROSIS POSTMENOPAUSAL
     Dosage: UNK
     Route: 058
  2. CALCIUM [Concomitant]

REACTIONS (3)
  - Electrocardiogram QRS complex shortened [Unknown]
  - Tachycardia paroxysmal [Unknown]
  - Palpitations [Unknown]
